FAERS Safety Report 8602465-8 (Version None)
Quarter: 2012Q3

REPORT INFORMATION
  Report Type: 
  Country: None (occurrence: None)
  Receive Date: 20120817
  Receipt Date: 20120810
  Transmission Date: 20120928
  Serious: Yes (Hospitalization)
  Sender: FDA-Public Use
  Company Number: JP-CELGENEUS-087-21880-12072849

PATIENT
  Sex: Female
  Weight: 33 kg

DRUGS (8)
  1. REVLIMID [Suspect]
     Dosage: 15 MILLIGRAM
     Route: 048
     Dates: start: 20110803
  2. REVLIMID [Suspect]
     Dosage: 10 MILLIGRAM
     Route: 048
     Dates: start: 20120606, end: 20120703
  3. DEXAMETHASONE ACETATE [Suspect]
     Indication: MULTIPLE MYELOMA
     Route: 048
     Dates: start: 20110706, end: 20120703
  4. CELEBREX [Concomitant]
     Indication: PAIN MANAGEMENT
     Dosage: 200 MILLIGRAM
     Route: 048
     Dates: start: 20090401
  5. VELCADE [Concomitant]
     Indication: MULTIPLE MYELOMA
     Route: 065
     Dates: start: 20110706, end: 20120703
  6. LIVALO [Concomitant]
     Indication: HYPERLIPIDAEMIA
     Dosage: 1 MILLIGRAM
     Route: 048
     Dates: start: 20090401
  7. SULFAMETHOXAZOLE AND TRIMETHOPRIM [Concomitant]
     Indication: PROPHYLAXIS
     Dosage: 1 TABLET
     Route: 048
     Dates: start: 20090401
  8. REVLIMID [Suspect]
     Indication: MULTIPLE MYELOMA
     Dosage: 25 MILLIGRAM
     Route: 048
     Dates: start: 20110706

REACTIONS (1)
  - FANCONI SYNDROME ACQUIRED [None]
